FAERS Safety Report 7435662-8 (Version None)
Quarter: 2011Q2

REPORT INFORMATION
  Report Type: 
  Country: None (occurrence: None)
  Receive Date: 20110425
  Receipt Date: 20110412
  Transmission Date: 20111010
  Serious: Yes (Other)
  Sender: FDA-Public Use
  Company Number: FR-PFIZER INC-FR-WYE-H12980910

PATIENT
  Age: 38 Year
  Sex: Male
  Weight: 99.5 kg

DRUGS (10)
  1. PARACETAMOL [Suspect]
     Indication: PAIN
     Dosage: ON DEMAND
     Route: 065
  2. FELDENE [Suspect]
     Indication: PAIN
     Dosage: UNK
     Route: 065
     Dates: start: 20060515
  3. MOROCTOCOG ALFA [Suspect]
     Dosage: 3000 IU, 1X/2 DAY
     Dates: start: 20091028
  4. REFACTO [Suspect]
     Indication: FACTOR VIII DEFICIENCY
     Dosage: 3000 IU EVERY OTHER DAY CONTINUALLY AS PROPHYLAXIS
     Route: 065
     Dates: start: 19991005, end: 20091026
  5. ATRIPLA [Suspect]
     Indication: HIV INFECTION
     Dosage: UNK
     Route: 065
     Dates: start: 20090601
  6. MOROCTOCOG ALFA [Suspect]
     Indication: FACTOR VIII DEFICIENCY
     Dosage: 3000 IU, 1X/2 DAY
     Route: 042
     Dates: start: 20091028
  7. MOROCTOCOG ALFA [Suspect]
     Dosage: 3000 IU, 1X/2 DAY
     Dates: start: 20091028
  8. MOROCTOCOG ALFA [Suspect]
     Dosage: 3000 IU, 1X/2 DAY
     Dates: start: 20091028
  9. FELDENE [Suspect]
     Indication: ARTHRITIS
  10. OMEPRAZOLE [Suspect]
     Indication: PROPHYLAXIS
     Dosage: UNK
     Route: 065
     Dates: start: 20060515

REACTIONS (1)
  - FACTOR VIII INHIBITION [None]
